FAERS Safety Report 17991270 (Version 8)
Quarter: 2020Q4

REPORT INFORMATION
  Report Type: Report from Study
  Country: US (occurrence: US)
  Receive Date: 20200708
  Receipt Date: 20201127
  Transmission Date: 20210113
  Serious: Yes (Other)
  Sender: FDA-Public Use
  Company Number: NVSC2020US189986

PATIENT
  Age: 72 Year
  Sex: Female

DRUGS (1)
  1. ENTRESTO [Suspect]
     Active Substance: SACUBITRIL\VALSARTAN
     Indication: PRODUCT USED FOR UNKNOWN INDICATION
     Dosage: 50 MG, BID
     Route: 065
     Dates: start: 202001

REACTIONS (10)
  - Feeling abnormal [Unknown]
  - Dizziness [Recovered/Resolved]
  - Emotional disorder [Unknown]
  - Hypotension [Unknown]
  - Weight fluctuation [Unknown]
  - Decreased activity [Unknown]
  - Fatigue [Unknown]
  - Ejection fraction decreased [Unknown]
  - Anxiety [Unknown]
  - Insomnia [Unknown]

NARRATIVE: CASE EVENT DATE: 202008
